FAERS Safety Report 25016507 (Version 1)
Quarter: 2025Q1

REPORT INFORMATION
  Report Type: Spontaneous
  Country: AE (occurrence: AE)
  Receive Date: 20250227
  Receipt Date: 20250227
  Transmission Date: 20250409
  Serious: Yes (Other)
  Sender: ROCHE
  Company Number: AE-ROCHE-10000200316

PATIENT

DRUGS (1)
  1. VABYSMO [Suspect]
     Active Substance: FARICIMAB-SVOA
     Indication: Retinal vein occlusion
     Route: 065

REACTIONS (3)
  - Off label use [Unknown]
  - Vitritis [Unknown]
  - Haemorrhagic occlusive retinal vasculitis [Unknown]
